FAERS Safety Report 19229345 (Version 1)
Quarter: 2021Q2

REPORT INFORMATION
  Report Type: Spontaneous
  Country: US (occurrence: US)
  Receive Date: 20210506
  Receipt Date: 20210506
  Transmission Date: 20210717
  Serious: No
  Sender: FDA-Public Use
  Company Number: US-SA-2021SA147603

PATIENT
  Age: 66 Year
  Sex: Female

DRUGS (5)
  1. METHYLPHENIDAT [Concomitant]
     Active Substance: METHYLPHENIDATE
     Dosage: 20 MG
  2. DUPIXENT [Suspect]
     Active Substance: DUPILUMAB
     Indication: DERMATITIS
     Dosage: 300 MG, QOW
     Route: 058
     Dates: start: 20210115
  3. LEFLUNOMIDE. [Concomitant]
     Active Substance: LEFLUNOMIDE
     Dosage: 10 MG
  4. TRAZODONE [Concomitant]
     Active Substance: TRAZODONE HYDROCHLORIDE
     Dosage: 100 MG
  5. BUPROPION. [Concomitant]
     Active Substance: BUPROPION
     Dosage: 200 MG SR

REACTIONS (3)
  - Musculoskeletal discomfort [Unknown]
  - Dermatitis atopic [Unknown]
  - Product use in unapproved indication [Unknown]

NARRATIVE: CASE EVENT DATE: 20210115
